FAERS Safety Report 7115418-6 (Version None)
Quarter: 2010Q4

REPORT INFORMATION
  Report Type: 
  Country: None (occurrence: None)
  Receive Date: 20101122
  Receipt Date: 20101110
  Transmission Date: 20110411
  Serious: Yes (Other)
  Sender: FDA-Public Use
  Company Number: US-JNJFOC-20101104489

PATIENT
  Sex: Female
  Weight: 63.5 kg

DRUGS (2)
  1. ORTHO EVRA [Suspect]
     Indication: CONTRACEPTION
     Route: 062
  2. ORTHO EVRA [Suspect]
     Route: 062

REACTIONS (4)
  - ASTHENIA [None]
  - BALANCE DISORDER [None]
  - EYE DISORDER [None]
  - PRURITUS [None]
